FAERS Safety Report 25668481 (Version 1)
Quarter: 2025Q3

REPORT INFORMATION
  Report Type: Report from Study
  Country: US (occurrence: US)
  Receive Date: 20250812
  Receipt Date: 20250812
  Transmission Date: 20251021
  Serious: No
  Sender: SUNOVION
  Company Number: US-SUMITOMO PHARMA SWITZERLAND GMBH-2024SPA000667

PATIENT
  Age: 72 Year
  Sex: Male

DRUGS (17)
  1. ORGOVYX [Suspect]
     Active Substance: RELUGOLIX
     Indication: Prostate cancer
     Dosage: 360 MG, SINGLE
     Route: 048
     Dates: start: 20240620, end: 20240620
  2. ORGOVYX [Suspect]
     Active Substance: RELUGOLIX
     Dosage: 120 MG, QD
     Route: 048
     Dates: start: 20240621
  3. TAMSULOSIN HYDROCHLORIDE [Suspect]
     Active Substance: TAMSULOSIN HYDROCHLORIDE
     Indication: Product used for unknown indication
  4. AMLODIPINE BESYLATE [Concomitant]
     Active Substance: AMLODIPINE BESYLATE
  5. ASPIRIN [Concomitant]
     Active Substance: ASPIRIN
  6. ATORVASTATIN CALCIUM [Concomitant]
     Active Substance: ATORVASTATIN CALCIUM
  7. CALCIUM [Concomitant]
     Active Substance: CALCIUM
  8. FISH OIL [Concomitant]
     Active Substance: FISH OIL
  9. VITAMINS [Concomitant]
     Active Substance: VITAMINS
  10. OMEGA 3 [Concomitant]
     Active Substance: CAPSAICIN
  11. TYLENOL EXTRA STRENGTH [Concomitant]
     Active Substance: ACETAMINOPHEN
  12. TYLENOL PM [Concomitant]
     Active Substance: ACETAMINOPHEN\DIPHENHYDRAMINE
  13. ABIRATERONE ACETATE [Concomitant]
     Active Substance: ABIRATERONE ACETATE
  14. CALCIUM\VITAMIN D [Concomitant]
     Active Substance: CALCIUM\VITAMIN D
  15. PREDNISONE [Concomitant]
     Active Substance: PREDNISONE
  16. CALCIUM CARBONATE\VITAMIN D [Concomitant]
     Active Substance: CALCIUM CARBONATE\VITAMIN D
  17. JOINT HEALTH [Concomitant]
     Active Substance: AMINO ACIDS\BARLEY MALT

REACTIONS (8)
  - Pollakiuria [Unknown]
  - Frequent bowel movements [Recovering/Resolving]
  - Body fat disorder [Unknown]
  - Abdominal discomfort [Unknown]
  - Dizziness [Unknown]
  - Hot flush [Not Recovered/Not Resolved]
  - Asthenia [Unknown]
  - Fatigue [Unknown]
